FAERS Safety Report 11191965 (Version 2)
Quarter: 2015Q2

REPORT INFORMATION
  Report Type: Spontaneous
  Country: GB (occurrence: GB)
  Receive Date: 20150616
  Receipt Date: 20150616
  Transmission Date: 20150821
  Serious: Yes (Hospitalization)
  Sender: FDA-Public Use
  Company Number: GB-TEVA-569188ACC

PATIENT
  Age: 63 Year

DRUGS (9)
  1. RAMIPRIL. [Concomitant]
     Active Substance: RAMIPRIL
     Dosage: 2.5 MILLIGRAM DAILY; HELD FOR NOW UNTIL RASH IS BETTER; DAILY DOSE: 2.5MILLIGRAM
     Route: 048
  2. DOXYCYCLINE. [Suspect]
     Active Substance: DOXYCYCLINE
     Dosage: 200 MILLIGRAM DAILY; 2 STAT THEN 1 PER DAY; DAILY DOSE: 200MILLIGRAM
     Route: 048
     Dates: start: 20150102, end: 20150102
  3. LANSOPRAZOLE. [Concomitant]
     Active Substance: LANSOPRAZOLE
     Route: 048
  4. GLYCERYL TRINITRATE [Concomitant]
     Active Substance: NITROGLYCERIN
     Dosage: 40MCG / DOSE. 1-2 PUFFS AS NECESSARY
     Route: 048
  5. ASPIRIN. [Concomitant]
     Active Substance: ASPIRIN
     Dosage: 75 MILLIGRAM DAILY; HELD FOR NOW UNTIL RASH IS BETTER; DAILY DOSE: 75MILLIGRAM
     Route: 048
  6. ATORVASTATIN [Concomitant]
     Active Substance: ATORVASTATIN
     Dosage: 20 MILLIGRAM DAILY; AT NIGHT. HELD FOR NOW UNTIL RASH IS BETTER; DAILY DOSE: 20MILLIGRAM
     Route: 048
  7. DOXYCYCLINE. [Suspect]
     Active Substance: DOXYCYCLINE
     Dosage: 100 MILLIGRAM DAILY; 2 STAT THEN 1 PER DAY; DAILY DOSE: 100MILLIGRAM
     Route: 048
     Dates: start: 20150103, end: 20150106
  8. RANOLAZINE [Concomitant]
     Active Substance: RANOLAZINE
     Route: 048
  9. BISOPROLOL [Concomitant]
     Active Substance: BISOPROLOL
     Dosage: 2.5 MILLIGRAM DAILY; HELD FOR NOW UNTIL RASH IS BETTER; DAILY DOSE: 2.5MILLIGRAM
     Route: 048

REACTIONS (2)
  - Pain in extremity [Unknown]
  - Vasculitis [Recovering/Resolving]

NARRATIVE: CASE EVENT DATE: 20150102
